FAERS Safety Report 22266543 (Version 2)
Quarter: 2023Q2

REPORT INFORMATION
  Report Type: Report from Study
  Country: RU (occurrence: RU)
  Receive Date: 20230428
  Receipt Date: 20230512
  Transmission Date: 20230722
  Serious: Yes (Other)
  Sender: FDA-Public Use
  Company Number: RU-TEVA-2023-RU-2880526

PATIENT

DRUGS (4)
  1. VINORELBINE [Suspect]
     Active Substance: VINORELBINE TARTRATE
     Indication: Non-small cell lung cancer
     Dosage: 2 COURSES OF NEOADJUVANT CHEMOTHERAPY- DAYS 1 AND 8
     Route: 065
  2. VINORELBINE [Suspect]
     Active Substance: VINORELBINE TARTRATE
     Dosage: ADJUVANT CHEMOTHERAPY- ON DAYS 1 AND 8
     Route: 065
  3. CARBOPLATIN [Suspect]
     Active Substance: CARBOPLATIN
     Indication: Non-small cell lung cancer
     Dosage: 2 COURSES OF NEOADJUVANT CHEMOTHERAPY- AUC 6 (ON DAY 2)
     Route: 065
  4. CARBOPLATIN [Suspect]
     Active Substance: CARBOPLATIN
     Dosage: ADJUVANT CHEMOTHERAPY- AUC 6 (ON DAY 2)
     Route: 065

REACTIONS (1)
  - Nephropathy toxic [Unknown]
